FAERS Safety Report 26190095 (Version 1)
Quarter: 2025Q4

REPORT INFORMATION
  Report Type: Spontaneous
  Country: CA (occurrence: CA)
  Receive Date: 20251223
  Receipt Date: 20251223
  Transmission Date: 20260118
  Serious: Yes (Hospitalization)
  Sender: APOTEX
  Company Number: CA-PGRTD-001156722

PATIENT
  Age: 44 Year
  Sex: Female
  Weight: 106 kg

DRUGS (13)
  1. LITHIUM CARBONATE [Suspect]
     Active Substance: LITHIUM CARBONATE
     Indication: Schizoaffective disorder bipolar type
     Dosage: 2700 MILLIGRAM, 1 EVERY 1 HOURS
     Route: 061
  2. CETIRIZINE [Concomitant]
     Active Substance: CETIRIZINE HYDROCHLORIDE
     Dosage: UNK
     Route: 065
  3. CLOZAPINE [Concomitant]
     Active Substance: CLOZAPINE
     Dosage: UNK
     Route: 065
  4. DICLOFENAC [Concomitant]
     Active Substance: DICLOFENAC
     Dosage: UNK
     Route: 065
  5. METFORMIN [Concomitant]
     Active Substance: METFORMIN HYDROCHLORIDE
     Dosage: UNK
     Route: 065
  6. PANTOPRAZOLE [Concomitant]
     Active Substance: PANTOPRAZOLE
     Dosage: UNK
     Route: 065
  7. CHOLECALCIFEROL [Concomitant]
     Active Substance: CHOLECALCIFEROL
     Dosage: UNK
     Route: 065
  8. CYANOCOBALAMIN [Concomitant]
     Active Substance: CYANOCOBALAMIN
     Dosage: UNK
     Route: 065
  9. VITAMINS [Concomitant]
     Active Substance: VITAMINS
     Dosage: UNK
     Route: 065
  10. PALIPERIDONE [Concomitant]
     Active Substance: PALIPERIDONE
     Dosage: UNK
     Route: 065
  11. PETROLATUM [Concomitant]
     Active Substance: PETROLATUM
     Dosage: UNK
     Route: 065
  12. PSYLLIUM HUSK [Concomitant]
     Active Substance: PSYLLIUM HUSK
     Dosage: UNK
     Route: 065
  13. SENNA [Concomitant]
     Active Substance: SENNOSIDES
     Dosage: UNK
     Route: 065

REACTIONS (6)
  - Frequent bowel movements [Recovered/Resolved]
  - Motor dysfunction [Recovered/Resolved]
  - Accidental overdose [Recovered/Resolved]
  - Toxicity to various agents [Recovered/Resolved]
  - Tremor [Recovered/Resolved]
  - Diarrhoea [Recovered/Resolved]
